FAERS Safety Report 10133945 (Version 2)
Quarter: 2014Q2

REPORT INFORMATION
  Report Type: Spontaneous
  Country: US (occurrence: US)
  Receive Date: 20140428
  Receipt Date: 20140626
  Transmission Date: 20141212
  Serious: Yes (Other)
  Sender: FDA-Public Use
  Company Number: US-PFIZER INC-2014112845

PATIENT
  Age: 50 Year
  Sex: Female

DRUGS (4)
  1. LEVOXYL [Suspect]
     Dosage: 200 UG, UNK
  2. AMITRIPTYLINE HYDROCHLORIDE [Interacting]
     Dosage: UNK
  3. UNITHROID [Interacting]
     Dosage: UNK
  4. SYNTHROID [Interacting]
     Dosage: UNK

REACTIONS (15)
  - Cellulitis [Unknown]
  - Facial pain [Unknown]
  - Burning sensation [Unknown]
  - Neck pain [Unknown]
  - Erythema [Unknown]
  - Pain in extremity [Unknown]
  - Fibromyalgia [Unknown]
  - Pain [Unknown]
  - Irritable bowel syndrome [Unknown]
  - Visual impairment [Unknown]
  - Eye irritation [Unknown]
  - Ocular hyperaemia [Unknown]
  - Feeling hot [Unknown]
  - Psychomotor hyperactivity [Unknown]
  - Drug interaction [Unknown]
